FAERS Safety Report 4329840-4 (Version None)
Quarter: 2004Q1

REPORT INFORMATION
  Report Type: 
  Country: None (occurrence: None)
  Receive Date: 20040319
  Receipt Date: 20031218
  Transmission Date: 20041129
  Serious: No
  Sender: FDA-Public Use
  Company Number: US-JNJFOC-20031204646

PATIENT
  Age: 18 Year
  Sex: Female
  Weight: 54.4316 kg

DRUGS (1)
  1. ORTHO EVRA [Suspect]
     Indication: CONTRACEPTION
     Dosage: 1 DOSE(S), 3 IN 4 WEEK TRANSDERMAL
     Route: 062
     Dates: start: 20031202

REACTIONS (6)
  - ABDOMINAL PAIN [None]
  - GENITAL PRURITUS FEMALE [None]
  - HEADACHE [None]
  - METRORRHAGIA [None]
  - SINUSITIS [None]
  - VAGINAL DISCHARGE [None]
